FAERS Safety Report 9529467 (Version 1)
Quarter: 2013Q1

REPORT INFORMATION
  Report Type: Spontaneous
  Country: US (occurrence: None)
  Receive Date: 20130329
  Receipt Date: 20130329
  Transmission Date: 20140127
  Serious: No
  Sender: FDA-Public Use
  Company Number: 1000041732

PATIENT
  Age: 55 Year
  Sex: Female

DRUGS (8)
  1. LINZESS [Suspect]
     Indication: IRRITABLE BOWEL SYNDROME
     Route: 048
     Dates: start: 20130108
  2. SEROQUEL (QUETIAPINE FUMARATE) [Concomitant]
  3. CLONAZEPAM (CLONAZEPAM) (CLONAZEPAM) [Concomitant]
  4. CITALOPRAM [Concomitant]
  5. GLYBURIDE (GLIBENCLAMIDE) [Concomitant]
  6. GLYCEROL (GLYCEROL) [Concomitant]
  7. SIMVASTATIN (SIMVASTATIN) [Concomitant]
  8. LISINOPRIL (LISINOPRIL) [Concomitant]

REACTIONS (2)
  - Drug ineffective [None]
  - Flatulence [None]
